FAERS Safety Report 6643237-3 (Version None)
Quarter: 2010Q1

REPORT INFORMATION
  Report Type: 
  Country: None (occurrence: None)
  Receive Date: 20100319
  Receipt Date: 20100310
  Transmission Date: 20100710
  Serious: Yes (Hospitalization)
  Sender: FDA-Public Use
  Company Number: US-ABBOTT-10P-163-0631721-00

PATIENT
  Sex: Female
  Weight: 58.112 kg

DRUGS (1)
  1. NORVIR [Suspect]
     Indication: HIV INFECTION
     Dosage: 600MG/7.5ML BID
     Route: 048

REACTIONS (2)
  - ASTHENIA [None]
  - INCORRECT DOSE ADMINISTERED [None]
